FAERS Safety Report 4904921-2 (Version None)
Quarter: 2006Q1

REPORT INFORMATION
  Report Type: 
  Country: None (occurrence: None)
  Receive Date: 20060208
  Receipt Date: 20051019
  Transmission Date: 20060701
  Serious: No
  Sender: FDA-Public Use
  Company Number: US-GLAXOSMITHKLINE-A0579201A

PATIENT
  Sex: Male

DRUGS (7)
  1. PAXIL [Suspect]
     Indication: DEPRESSION
     Route: 065
  2. WELLBUTRIN [Suspect]
     Indication: DRUG USE FOR UNKNOWN INDICATION
     Route: 065
  3. PROZAC [Concomitant]
  4. EFFEXOR [Concomitant]
  5. CELEXA [Concomitant]
  6. SERZONE [Concomitant]
  7. ZOLOFT [Concomitant]

REACTIONS (3)
  - DRUG INEFFECTIVE [None]
  - ERECTILE DYSFUNCTION [None]
  - SOMNOLENCE [None]
